FAERS Safety Report 7915031-4 (Version None)
Quarter: 2011Q4

REPORT INFORMATION
  Report Type: 
  Country: None (occurrence: None)
  Receive Date: 20111115
  Receipt Date: 20101109
  Transmission Date: 20120403
  Serious: No
  Sender: FDA-Public Use
  Company Number: US-AMGEN-TCS334948

PATIENT
  Age: 69 Year
  Sex: Female

DRUGS (3)
  1. METHOTREXATE [Concomitant]
     Dosage: 7.5 MG, QWK
     Route: 048
     Dates: start: 20081216
  2. ENBREL [Suspect]
     Indication: PSORIASIS
     Dosage: 50 MG, 2 TIMES/WK
     Route: 058
     Dates: start: 20090106
  3. ENBREL [Suspect]
     Indication: PSORIATIC ARTHROPATHY
     Dates: start: 20090107

REACTIONS (9)
  - ERYTHEMA [None]
  - ARTHRALGIA [None]
  - SKIN EXFOLIATION [None]
  - CHOLELITHIASIS [None]
  - SCAB [None]
  - PSORIASIS [None]
  - BRONCHITIS [None]
  - SINUSITIS [None]
  - BREAST CALCIFICATIONS [None]
